FAERS Safety Report 6898568-9 (Version None)
Quarter: 2010Q3

REPORT INFORMATION
  Report Type: 
  Country: None (occurrence: None)
  Receive Date: 20100802
  Receipt Date: 20071101
  Transmission Date: 20110219
  Serious: Yes (Other)
  Sender: FDA-Public Use
  Company Number: US-PFIZER INC-2007013527

PATIENT
  Sex: Female
  Weight: 81.6 kg

DRUGS (8)
  1. LYRICA [Suspect]
     Indication: NEUROPATHY PERIPHERAL
     Dates: start: 20060512, end: 20070830
  2. LYRICA [Suspect]
     Dates: start: 20060101, end: 20070101
  3. AMBIEN [Concomitant]
  4. FLUOXETINE [Concomitant]
  5. PROTONIX [Concomitant]
  6. NORTRIPTYLINE [Concomitant]
  7. TRIAMTERENE [Concomitant]
  8. HYDROCORT [Concomitant]

REACTIONS (1)
  - VISION BLURRED [None]
